FAERS Safety Report 8333178-8 (Version None)
Quarter: 2012Q1

REPORT INFORMATION
  Report Type: 
  Country: None (occurrence: None)
  Receive Date: 20120327
  Receipt Date: 20110310
  Transmission Date: 20120608
  Serious: Yes (Other)
  Sender: FDA-Public Use
  Company Number: PHHY2011US15684

PATIENT
  Age: 63 Year
  Sex: Female

DRUGS (8)
  1. GLEEVEC [Suspect]
     Indication: CHRONIC MYELOID LEUKAEMIA
     Dosage: , ORAL, 400 MG, DAILY, ORAL, 400 MG, QD, ORAL
     Route: 048
     Dates: start: 20070401
  2. GLEEVEC [Suspect]
     Indication: CHRONIC MYELOID LEUKAEMIA
     Dosage: , ORAL, 400 MG, DAILY, ORAL, 400 MG, QD, ORAL
     Route: 048
     Dates: start: 20070501
  3. GLEEVEC [Suspect]
     Indication: CHRONIC MYELOID LEUKAEMIA
     Dosage: , ORAL, 400 MG, DAILY, ORAL, 400 MG, QD, ORAL
     Route: 048
     Dates: start: 20100311
  4. POTASSIUM SUPPLEMENTS (POTASSIUM) [Concomitant]
  5. MAGNESIUM SUPPLEMENTS (MAGNESIUM) [Concomitant]
  6. COMPAZINE [Concomitant]
  7. ZESTRIL [Concomitant]
  8. KLOR-CON [Concomitant]

REACTIONS (9)
  - PAIN [None]
  - BLOOD POTASSIUM DECREASED [None]
  - BLOOD MAGNESIUM DECREASED [None]
  - FLUID RETENTION [None]
  - OEDEMA [None]
  - VOMITING PROJECTILE [None]
  - NAUSEA [None]
  - DIARRHOEA [None]
  - ANAL HAEMORRHAGE [None]
